FAERS Safety Report 9368982 (Version 2)
Quarter: 2013Q3

REPORT INFORMATION
  Report Type: Spontaneous
  Country: US (occurrence: US)
  Receive Date: 20130626
  Receipt Date: 20130709
  Transmission Date: 20140515
  Serious: Yes (Other)
  Sender: FDA-Public Use
  Company Number: US-AMGEN-USASP2013044039

PATIENT
  Age: 44 Year
  Sex: Male
  Weight: 63.04 kg

DRUGS (6)
  1. ENBREL [Suspect]
     Indication: PRODUCT USED FOR UNKNOWN INDICATION
     Dosage: 50 MG, QWK
     Route: 030
     Dates: start: 20050330, end: 20120911
  2. BABY ASPIRIN [Concomitant]
     Dosage: 81 MG, UNK
  3. VITAMIN E                          /00110501/ [Concomitant]
     Dosage: 200 UNIT, UNK
  4. MAGNESIUM [Concomitant]
     Dosage: 30 MG, UNK
  5. VITAMIN D3 [Concomitant]
     Dosage: 1000 UNIT, UNK
  6. MULTIVITAMINS, PLAIN [Concomitant]
     Dosage: UNK

REACTIONS (1)
  - Malignant melanoma in situ [Recovered/Resolved]
